FAERS Safety Report 7097961-1 (Version None)
Quarter: 2010Q4

REPORT INFORMATION
  Report Type: 
  Country: None (occurrence: None)
  Receive Date: 20101104
  Receipt Date: 20101021
  Transmission Date: 20110411
  Serious: Yes (Hospitalization)
  Sender: FDA-Public Use
  Company Number: 1000017009

PATIENT
  Sex: Female

DRUGS (3)
  1. ESCITALOPRAM OXALATE [Suspect]
     Dosage: 30 MG (30 MG, 1 IN 1 D), ORAL, 200 MG, ONCE, ORAL
     Route: 048
     Dates: start: 20101017, end: 20101017
  2. ESCITALOPRAM OXALATE [Suspect]
     Dosage: 5 MG (5 MG, 1 IN 1 D), ORAL
     Route: 048
     Dates: start: 20101021
  3. TERCIAN 9CYAMEMAZINE (CYAMEMAZINE) [Concomitant]

REACTIONS (4)
  - DISCOMFORT [None]
  - DRUG PRESCRIBING ERROR [None]
  - INTENTIONAL OVERDOSE [None]
  - SENSE OF OPPRESSION [None]
